FAERS Safety Report 14588359 (Version 1)
Quarter: 2018Q1

REPORT INFORMATION
  Report Type: Spontaneous
  Country: JP (occurrence: JP)
  Receive Date: 20180301
  Receipt Date: 20180301
  Transmission Date: 20180509
  Serious: Yes (Death)
  Sender: FDA-Public Use
  Company Number: JP-MYLANLABS-2018M1013681

PATIENT
  Age: 77 Year
  Sex: Female

DRUGS (1)
  1. HEPARIN [Suspect]
     Active Substance: HEPARIN SODIUM
     Indication: PRODUCT USED FOR UNKNOWN INDICATION
     Route: 065

REACTIONS (15)
  - Seizure [Fatal]
  - Pancreatic necrosis [Fatal]
  - Respiratory failure [Fatal]
  - Melaena [Fatal]
  - Cerebral venous thrombosis [Fatal]
  - Multiple organ dysfunction syndrome [Fatal]
  - Pancreatic haemorrhage [Fatal]
  - Adrenal thrombosis [Fatal]
  - Pulmonary thrombosis [Fatal]
  - Heparin-induced thrombocytopenia [Fatal]
  - Hemiplegia [Fatal]
  - Pulmonary infarction [Fatal]
  - Haemorrhagic infarction [Fatal]
  - Embolism [Fatal]
  - Gastrointestinal necrosis [Fatal]
